FAERS Safety Report 24414790 (Version 1)
Quarter: 2024Q4

REPORT INFORMATION
  Report Type: Spontaneous
  Country: FR (occurrence: FR)
  Receive Date: 20241009
  Receipt Date: 20241009
  Transmission Date: 20250115
  Serious: Yes (Other)
  Sender: CHEPLAPHARM
  Company Number: None

PATIENT
  Age: 66 Year
  Sex: Male

DRUGS (31)
  1. PREDNISONE [Suspect]
     Active Substance: PREDNISONE
     Indication: Prophylaxis against transplant rejection
     Dosage: DAILY DOSE: 5 MILLIGRAM
     Route: 048
     Dates: start: 20240420
  2. AMPHOTERICIN B [Suspect]
     Active Substance: AMPHOTERICIN B
     Dosage: DAILY DOSE: 3 DOSAGE FORM
     Route: 048
     Dates: start: 202404, end: 20240520
  3. VALGANCICLOVIR [Suspect]
     Active Substance: VALGANCICLOVIR
     Indication: Prophylaxis
     Dosage: DAILY DOSE: 900 MILLIGRAM
     Route: 048
     Dates: start: 20240420
  4. ATORVASTATIN [Suspect]
     Active Substance: ATORVASTATIN
     Indication: Prophylaxis
     Dosage: DAILY DOSE: 10 MILLIGRAM
     Route: 048
     Dates: start: 20240420, end: 202405
  5. LEUCOVORIN CALCIUM [Suspect]
     Active Substance: LEUCOVORIN CALCIUM
     Indication: Prophylaxis
     Route: 048
     Dates: start: 20240420
  6. ALPRAZOLAM [Suspect]
     Active Substance: ALPRAZOLAM
     Dosage: DAILY DOSE: 0.25 MILLIGRAM
     Route: 048
     Dates: start: 202404
  7. CELLCEPT [Suspect]
     Active Substance: MYCOPHENOLATE MOFETIL
     Indication: Prophylaxis against transplant rejection
     Dosage: DAILY DOSE: 2000 MILLIGRAM
     Route: 048
     Dates: start: 20240420
  8. TACROLIMUS [Suspect]
     Active Substance: TACROLIMUS
     Indication: Prophylaxis against transplant rejection
     Dosage: DAILY DOSE: 11 MILLIGRAM
     Route: 048
     Dates: start: 20240420
  9. TACROLIMUS [Suspect]
     Active Substance: TACROLIMUS
     Indication: Prophylaxis against transplant rejection
     Dosage: DAILY DOSE: 12 MILLIGRAM
     Route: 048
  10. BACTRIM [Suspect]
     Active Substance: SULFAMETHOXAZOLE\TRIMETHOPRIM
     Indication: Prophylaxis
     Route: 048
     Dates: start: 20240420
  11. RITUXIMAB [Concomitant]
     Active Substance: RITUXIMAB
  12. ACTONEL [Concomitant]
     Active Substance: RISEDRONATE SODIUM
  13. TACROLIMUS [Concomitant]
     Active Substance: TACROLIMUS
     Dosage: DAILY DOSE: 4 MILLIGRAM
  14. EZETIMIBE [Concomitant]
     Active Substance: EZETIMIBE
     Dosage: DAILY DOSE: 10 MILLIGRAM
  15. FEBUXOSTAT [Concomitant]
     Active Substance: FEBUXOSTAT
  16. FINASTERIDE [Concomitant]
     Active Substance: FINASTERIDE
     Dosage: DAILY DOSE: 5 MILLIGRAM
  17. Kard?gic [Concomitant]
     Dosage: DAILY DOSE: 75 MILLIGRAM
  18. LANSOPRAZOLE [Concomitant]
     Active Substance: LANSOPRAZOLE
     Dosage: DAILY DOSE: 15 MILLIGRAM
  19. FUROSEMIDE [Concomitant]
     Active Substance: FUROSEMIDE
  20. CINACALCET HYDROCHLORIDE [Concomitant]
     Active Substance: CINACALCET HYDROCHLORIDE
  21. CINACALCET HYDROCHLORIDE [Concomitant]
     Active Substance: CINACALCET HYDROCHLORIDE
  22. MOVICOL [Concomitant]
     Active Substance: POLYETHYLENE GLYCOL 3350\POTASSIUM CHLORIDE\SODIUM BICARBONATE\SODIUM CHLORIDE
     Dosage: IF REQUIRED
  23. CALCIUM CARBONATE [Concomitant]
     Active Substance: CALCIUM CARBONATE
  24. Quetiapine LP [Concomitant]
     Dosage: DAILY DOSE: 50 MILLIGRAM
  25. ANETHOLTRITHION [Concomitant]
     Active Substance: ANETHOLTRITHION
  26. CHOLECALCIFEROL [Concomitant]
     Active Substance: CHOLECALCIFEROL
  27. VALDOXAN [Concomitant]
     Active Substance: AGOMELATINE
     Dosage: DAILY DOSE: 25 MILLIGRAM
  28. VELPHORO [Concomitant]
     Active Substance: SUCROFERRIC OXYHYDROXIDE
     Dosage: 3 SEM
  29. ALFUZOSIN [Concomitant]
     Active Substance: ALFUZOSIN
     Dosage: DAILY DOSE: 10 MILLIGRAM
  30. POLYETHYLENE GLYCOLS [Concomitant]
     Active Substance: POLYETHYLENE GLYCOLS
  31. CALCIUM PHOSPHATE, DIBASIC, ANHYDROUS\MAGNESIUM GLYCEROPHOSPHATE\PHOSP [Concomitant]
     Active Substance: CALCIUM PHOSPHATE, DIBASIC, ANHYDROUS\MAGNESIUM GLYCEROPHOSPHATE\PHOSPHORIC ACID\SODIUM PHOSPHATE, D
     Dosage: 50 GTT/DAY

REACTIONS (1)
  - Tendon rupture [Not Recovered/Not Resolved]

NARRATIVE: CASE EVENT DATE: 20240514
